FAERS Safety Report 6620524-6 (Version None)
Quarter: 2010Q1

REPORT INFORMATION
  Report Type: 
  Country: None (occurrence: None)
  Receive Date: 20100309
  Receipt Date: 20100305
  Transmission Date: 20100710
  Serious: Yes (Other)
  Sender: FDA-Public Use
  Company Number: GB-BRISTOL-MYERS SQUIBB COMPANY-15004849

PATIENT
  Age: 69 Year
  Sex: Female
  Weight: 70 kg

DRUGS (7)
  1. PRAVASTATIN SODIUM [Suspect]
     Indication: ATRIAL FIBRILLATION
     Route: 048
     Dates: start: 20080301, end: 20090721
  2. PRAVASTATIN SODIUM [Suspect]
     Indication: BLOOD CHOLESTEROL INCREASED
     Route: 048
     Dates: start: 20080301, end: 20090721
  3. PRAVASTATIN SODIUM [Suspect]
     Indication: PROPHYLAXIS
     Route: 048
     Dates: start: 20080301, end: 20090721
  4. ATENOLOL [Concomitant]
     Route: 065
  5. BISOPROLOL FUMARATE [Concomitant]
     Indication: TRANSIENT ISCHAEMIC ATTACK
     Route: 065
  6. RAMIPRIL [Concomitant]
     Route: 048
  7. WARFARIN SODIUM [Concomitant]
     Indication: ANTICOAGULANT THERAPY
     Route: 048
     Dates: start: 20030206

REACTIONS (3)
  - MUSCULAR WEAKNESS [None]
  - PAIN [None]
  - WEIGHT DECREASED [None]
